FAERS Safety Report 7983744-4 (Version None)
Quarter: 2011Q4

REPORT INFORMATION
  Report Type: 
  Country: None (occurrence: None)
  Receive Date: 20111215
  Receipt Date: 20111209
  Transmission Date: 20120403
  Serious: Yes (Life-Threatening, Hospitalization)
  Sender: FDA-Public Use
  Company Number: NL-AMGEN-NLDSP2011061847

PATIENT
  Age: 73 Year
  Sex: Female

DRUGS (39)
  1. NOVORAPID [Concomitant]
     Dosage: 100 UNK, UNK
     Route: 058
     Dates: start: 20111121
  2. MULTIVITAMINES AND MINERALS [Concomitant]
     Dosage: UNK UNK, QD
     Route: 048
     Dates: start: 20111121
  3. LIDOCAINE W/PRILOCAINE [Concomitant]
     Dosage: 5 G, UNK
     Route: 061
     Dates: start: 20111121
  4. TRAMADOL HCL [Concomitant]
     Dosage: 50 UNK, UNK
  5. DIAZEPAM [Concomitant]
     Dosage: 5 MG, UNK
  6. POLYETHYLENE GLYCOL [Concomitant]
     Dosage: UNK
     Route: 048
     Dates: start: 20111121
  7. CALCIUM CARBONATE [Concomitant]
     Dosage: 1.25 G, UNK
     Route: 048
     Dates: start: 20111121
  8. ACETYLSALICYLIC ACID SRT [Concomitant]
     Dosage: 80 MG, QD
     Route: 048
     Dates: start: 20111121
  9. COLECALCIFEROL [Concomitant]
     Dosage: 50000 IU, UNK
     Route: 048
     Dates: start: 20111121
  10. PREDNISOLONE [Concomitant]
     Dosage: 2.5 MG, QD
     Dates: start: 20111121
  11. COLCHICINE [Concomitant]
     Dosage: 0.5 MG, UNK
  12. FERROFUMARAAT [Concomitant]
     Dosage: 200 MG, UNK
  13. CALCIUM [Concomitant]
     Indication: PAIN
     Dosage: UNK
     Dates: start: 20111121
  14. PROLIA [Suspect]
     Indication: OSTEOPOROSIS
     Dosage: UNK
     Dates: start: 20111118
  15. OMEPRAZOLE [Concomitant]
     Dosage: 40 MG, QD
     Route: 048
     Dates: start: 20111121
  16. NOVOLOG MIX 70/30 [Concomitant]
     Dosage: UNK UNK, BID
     Route: 058
     Dates: start: 20111121
  17. NADROPARIN                         /01437702/ [Concomitant]
     Dosage: UNK UNK, QD
     Route: 058
     Dates: start: 20111121
  18. DIGOXIN [Concomitant]
     Dosage: 0.062 MG, QD
     Route: 048
     Dates: start: 20111121
  19. FUROSEMIDE [Concomitant]
     Dosage: 500 MG, BID
     Route: 048
     Dates: start: 20111121
  20. LIPITOR [Concomitant]
     Dosage: 40 MG, QD
     Route: 048
     Dates: start: 20111121
  21. LEFLUNOMIDE [Concomitant]
     Dosage: 10 MG, UNK
     Route: 048
     Dates: start: 20111121
  22. SEVELAMER CARBONATE [Concomitant]
     Dosage: 2.4 G, UNK
     Dates: start: 20111121
  23. VITAMIN D [Concomitant]
  24. ALFACALCIDOL [Concomitant]
     Dosage: UNK
     Route: 048
     Dates: start: 20111121
  25. LISINOPRIL [Concomitant]
     Dosage: 20 MG, UNK
  26. AMLODIPINE [Concomitant]
     Dosage: 5 MG, UNK
  27. NITRAZEPAM [Concomitant]
     Dosage: 5 MG, UNK
  28. CALCIUM [Concomitant]
     Indication: HYPOCALCAEMIA
  29. ARANESP [Concomitant]
     Dosage: 40 MUG, UNK
     Dates: start: 20111121
  30. PREDNISOLONE [Concomitant]
     Dosage: 5 MG, QD
     Route: 048
     Dates: start: 20111121
  31. OXYCODONE HCL [Concomitant]
     Dosage: 5 MG, UNK
     Dates: start: 20111121
  32. ALLOPURINOL [Concomitant]
  33. TEMAZEPAM [Concomitant]
     Dosage: 10 MG, QD
     Route: 048
     Dates: start: 20111121
  34. CITALOPRAM [Concomitant]
     Dosage: 40 MG, QD
     Route: 048
     Dates: start: 20111121
  35. PREDNISONE [Concomitant]
     Dosage: 10 MG, UNK
  36. ASCAL CARDIO [Concomitant]
     Dosage: 80 UNK, UNK
  37. METOPROLOL TARTRATE [Concomitant]
     Dosage: 100 MG, QD
     Route: 048
     Dates: start: 20111121
  38. PARACETAMOL [Concomitant]
     Dosage: 500 MG, UNK
     Route: 048
     Dates: start: 20111121
  39. NATRIUM BICARBONAT [Concomitant]
     Dosage: 500 MG, UNK

REACTIONS (5)
  - MYOCARDIAL INFARCTION [None]
  - PAIN [None]
  - INFECTION [None]
  - ATRIAL FIBRILLATION [None]
  - HYPOCALCAEMIA [None]
